FAERS Safety Report 8998772 (Version 1)
Quarter: 2013Q1

REPORT INFORMATION
  Report Type: Spontaneous
  Country: US (occurrence: US)
  Receive Date: 20130103
  Receipt Date: 20130103
  Transmission Date: 20140127
  Serious: No
  Sender: FDA-Public Use
  Company Number: US-PFIZER INC-2012334262

PATIENT
  Sex: Male

DRUGS (1)
  1. ATORVASTATIN CALCIUM [Suspect]
     Dosage: 10 MG, UNK
     Dates: end: 201212

REACTIONS (3)
  - Myalgia [Unknown]
  - Constipation [Unknown]
  - Hepatic enzyme increased [Unknown]
